FAERS Safety Report 21922559 (Version 1)
Quarter: 2023Q1

REPORT INFORMATION
  Report Type: Spontaneous
  Country: ES (occurrence: ES)
  Receive Date: 20230128
  Receipt Date: 20230128
  Transmission Date: 20230417
  Serious: Yes (Other)
  Sender: FDA-Public Use
  Company Number: ES-MLMSERVICE-20230117-4038464-1

PATIENT
  Age: 75 Year
  Sex: Male

DRUGS (3)
  1. MELPHALAN [Suspect]
     Active Substance: MELPHALAN
     Indication: Plasma cell myeloma
     Dosage: 4 CYCLES
     Route: 065
     Dates: start: 201008, end: 2011
  2. BORTEZOMIB [Suspect]
     Active Substance: BORTEZOMIB
     Indication: Plasma cell myeloma
     Route: 065
     Dates: start: 201008, end: 2011
  3. PREDNISONE [Suspect]
     Active Substance: PREDNISONE
     Indication: Plasma cell myeloma
     Dosage: 4 CYCLES
     Route: 065
     Dates: start: 201008, end: 2011

REACTIONS (4)
  - Thrombocytopenia [Unknown]
  - Paraesthesia [Unknown]
  - Diarrhoea [Unknown]
  - Hypophosphataemia [Unknown]

NARRATIVE: CASE EVENT DATE: 20110201
